FAERS Safety Report 24630225 (Version 1)
Quarter: 2024Q4

REPORT INFORMATION
  Report Type: Spontaneous
  Country: ID (occurrence: ID)
  Receive Date: 20241118
  Receipt Date: 20241118
  Transmission Date: 20250114
  Serious: No
  Sender: ASTELLAS
  Company Number: ID-ASTELLAS-2024-AER-018678

PATIENT
  Sex: Male

DRUGS (1)
  1. VESICARE [Suspect]
     Active Substance: SOLIFENACIN SUCCINATE
     Indication: Product used for unknown indication
     Route: 065

REACTIONS (3)
  - Intercepted medication error [Unknown]
  - Product expiration date issue [Unknown]
  - Product tampering [Unknown]
